FAERS Safety Report 25777966 (Version 1)
Quarter: 2025Q3

REPORT INFORMATION
  Report Type: Spontaneous
  Country: US (occurrence: None)
  Receive Date: 20250906
  Receipt Date: 20250906
  Transmission Date: 20251020
  Serious: No
  Sender: FDA-CTU
  Company Number: None

PATIENT
  Age: 45 Year
  Sex: Male
  Weight: 63.45 kg

DRUGS (5)
  1. LEVOFLOXACIN [Suspect]
     Active Substance: LEVOFLOXACIN
     Indication: Sinusitis
     Dosage: OTHER QUANTITY : 1 TABLET(S);?FREQUENCY : DAILY;?
     Route: 048
     Dates: start: 20250820, end: 20250830
  2. IBUPROFEN [Concomitant]
     Active Substance: IBUPROFEN
  3. Hydrocodone/acetaminophen 7.5-325mg [Concomitant]
  4. DEXAMETHASONE [Concomitant]
     Active Substance: DEXAMETHASONE
  5. METHOCARBAMOL [Concomitant]
     Active Substance: METHOCARBAMOL

REACTIONS (6)
  - Neuralgia [None]
  - Pain [None]
  - Mobility decreased [None]
  - Oropharyngeal pain [None]
  - Hypophagia [None]
  - Activities of daily living decreased [None]

NARRATIVE: CASE EVENT DATE: 20250823
